FAERS Safety Report 12689486 (Version 1)
Quarter: 2016Q3

REPORT INFORMATION
  Report Type: Spontaneous
  Country: US (occurrence: US)
  Receive Date: 20160826
  Receipt Date: 20160826
  Transmission Date: 20161109
  Serious: Yes (Hospitalization, Other)
  Sender: FDA-Public Use
  Company Number: US-GLAXOSMITHKLINE-US2016120258

PATIENT
  Age: 57 Year
  Sex: Male

DRUGS (15)
  1. ATORVASTATIN [Concomitant]
     Active Substance: ATORVASTATIN
  2. FUROSEMIDE. [Concomitant]
     Active Substance: FUROSEMIDE
  3. GABAPENTIN. [Concomitant]
     Active Substance: GABAPENTIN
  4. DIAZEPAM. [Concomitant]
     Active Substance: DIAZEPAM
  5. DIPHENOXYLATE [Concomitant]
     Active Substance: DIPHENOXYLATE
  6. HUMIRA [Concomitant]
     Active Substance: ADALIMUMAB
  7. XARELTO [Suspect]
     Active Substance: RIVAROXABAN
     Indication: THROMBOSIS
     Dosage: 20 MG, QD
     Route: 048
     Dates: start: 201605
  8. COLESTIPOL [Concomitant]
     Active Substance: COLESTIPOL
  9. OXYCODONE [Concomitant]
     Active Substance: OXYCODONE
  10. TAMSULOSIN [Concomitant]
     Active Substance: TAMSULOSIN
  11. CLOPIDOGREL [Suspect]
     Active Substance: CLOPIDOGREL BISULFATE
     Indication: THROMBOSIS
     Dosage: 75 MG, QD
     Route: 048
     Dates: start: 201605
  12. XARELTO [Concomitant]
     Active Substance: RIVAROXABAN
  13. ADVAIR DISKUS [Suspect]
     Active Substance: FLUTICASONE PROPIONATE\SALMETEROL XINAFOATE
     Indication: CHRONIC OBSTRUCTIVE PULMONARY DISEASE
     Dosage: 1 MG, BID
     Route: 055
     Dates: start: 201511
  14. CLOPIDOGREL [Concomitant]
     Active Substance: CLOPIDOGREL BISULFATE
  15. DULOXETINE. [Concomitant]
     Active Substance: DULOXETINE

REACTIONS (17)
  - Blood disorder [Not Recovered/Not Resolved]
  - Diarrhoea [Recovered/Resolved]
  - Crohn^s disease [Not Recovered/Not Resolved]
  - Thrombosis [Not Recovered/Not Resolved]
  - Muscular weakness [Recovered/Resolved]
  - Cerebrovascular accident [Recovering/Resolving]
  - Asthenia [Recovering/Resolving]
  - Fluid retention [Not Recovered/Not Resolved]
  - Gastrointestinal disorder [Unknown]
  - Facial paresis [Recovering/Resolving]
  - Arthralgia [Unknown]
  - Peripheral swelling [Not Recovered/Not Resolved]
  - Hip arthroplasty [Recovering/Resolving]
  - Haemorrhage [Not Recovered/Not Resolved]
  - Hemiplegia [Recovered/Resolved]
  - Haemorrhagic diathesis [Not Recovered/Not Resolved]
  - Pain [Recovering/Resolving]

NARRATIVE: CASE EVENT DATE: 20160118
